FAERS Safety Report 4751454-2 (Version None)
Quarter: 2005Q3

REPORT INFORMATION
  Report Type: 
  Country: None (occurrence: None)
  Receive Date: 20050822
  Receipt Date: 20050812
  Transmission Date: 20060218
  Serious: Yes (Other)
  Sender: FDA-Public Use
  Company Number: 050096

PATIENT
  Age: 50 Year
  Sex: Female

DRUGS (1)
  1. GOLYTELY [Suspect]
     Indication: COLONOSCOPY
     Dosage: 1X, PO
     Route: 048

REACTIONS (2)
  - PHARYNGEAL OEDEMA [None]
  - URTICARIA [None]
